FAERS Safety Report 22137674 (Version 1)
Quarter: 2023Q1

REPORT INFORMATION
  Report Type: Spontaneous
  Country: US (occurrence: US)
  Receive Date: 20230325
  Receipt Date: 20230325
  Transmission Date: 20230417
  Serious: Yes (Hospitalization, Other)
  Sender: FDA-Public Use
  Company Number: US-MLMSERVICE-20230309-4152929-1

PATIENT
  Age: 69 Year
  Sex: Male

DRUGS (1)
  1. AMOXICILLIN\CLAVULANIC ACID [Suspect]
     Active Substance: AMOXICILLIN\CLAVULANIC ACID
     Indication: Respiratory symptom
     Dosage: 1 DOSAGE FORM, TOTAL
     Route: 065

REACTIONS (4)
  - Kounis syndrome [Recovered/Resolved]
  - Pharyngeal swelling [Unknown]
  - Dyspnoea [Unknown]
  - Urticaria [Unknown]
